FAERS Safety Report 22525482 (Version 1)
Quarter: 2023Q2

REPORT INFORMATION
  Report Type: 
  Country: US (occurrence: US)
  Receive Date: 20230606
  Receipt Date: 20230606
  Transmission Date: 20230722
  Serious: No
  Sender: FDA-Public Use
  Company Number: US-C B Fleet Co Inc-202208-US-002736

PATIENT
  Age: 4 Year
  Sex: Female

DRUGS (1)
  1. NIX COMPLETE MAXIMUM STRENGTH LICE ELIMINATION [Suspect]
     Active Substance: PERMETHRIN
     Indication: Lice infestation
     Dosage: 10 MINUTES
     Route: 061

REACTIONS (2)
  - Rash [Recovered/Resolved]
  - Accidental exposure to product [None]
